FAERS Safety Report 20362332 (Version 1)
Quarter: 2022Q1

REPORT INFORMATION
  Report Type: Spontaneous
  Country: US (occurrence: US)
  Receive Date: 20220121
  Receipt Date: 20220121
  Transmission Date: 20220424
  Serious: Yes (Other)
  Sender: FDA-Public Use
  Company Number: US-GLAXOSMITHKLINE-US2022GSK010388

PATIENT
  Sex: Male

DRUGS (8)
  1. ZANTAC [Suspect]
     Active Substance: RANITIDINE HYDROCHLORIDE
     Indication: Lymphoma
     Dosage: UNK UNK, QD
     Route: 065
     Dates: start: 199801, end: 201701
  2. ZANTAC [Suspect]
     Active Substance: RANITIDINE HYDROCHLORIDE
     Indication: Ulcer haemorrhage
  3. ZANTAC [Suspect]
     Active Substance: RANITIDINE HYDROCHLORIDE
     Indication: Lymphoma
     Dosage: UNK UNK, QD
     Route: 065
     Dates: start: 199801, end: 201701
  4. ZANTAC [Suspect]
     Active Substance: RANITIDINE HYDROCHLORIDE
     Indication: Ulcer haemorrhage
  5. RANITIDINE [Suspect]
     Active Substance: RANITIDINE
     Indication: Lymphoma
     Dosage: UNK, QD
     Route: 065
     Dates: start: 199801, end: 201701
  6. RANITIDINE [Suspect]
     Active Substance: RANITIDINE
     Indication: Ulcer haemorrhage
  7. RANITIDINE [Suspect]
     Active Substance: RANITIDINE
     Indication: Lymphoma
     Dosage: UNK, QD
     Route: 065
     Dates: start: 199801, end: 201701
  8. RANITIDINE [Suspect]
     Active Substance: RANITIDINE
     Indication: Ulcer haemorrhage

REACTIONS (1)
  - Colorectal cancer [Unknown]
